FAERS Safety Report 5058061-5 (Version None)
Quarter: 2006Q3

REPORT INFORMATION
  Report Type: 
  Country: None (occurrence: None)
  Receive Date: 20060721
  Receipt Date: 20060317
  Transmission Date: 20061208
  Serious: Yes (Hospitalization)
  Sender: FDA-Public Use
  Company Number: 2006CG00529

PATIENT
  Age: 26581 Day
  Sex: Male

DRUGS (18)
  1. ROSUVASTATIN [Suspect]
     Indication: ACUTE CORONARY SYNDROME
     Route: 048
     Dates: start: 20060308, end: 20060310
  2. ATENOLOL [Concomitant]
     Indication: ACUTE CORONARY SYNDROME
     Route: 048
     Dates: start: 20060307, end: 20060319
  3. ZESTRIL [Concomitant]
     Indication: HYPERTENSION
     Route: 048
     Dates: start: 20060308, end: 20060314
  4. OMEPRAZOLE [Concomitant]
     Indication: PROPHYLAXIS AGAINST GASTROINTESTINAL ULCER
     Route: 048
     Dates: start: 20060307
  5. RISORDAN [Concomitant]
     Indication: ACUTE CORONARY SYNDROME
     Route: 042
     Dates: start: 20060307, end: 20060308
  6. LOVENOX [Concomitant]
     Indication: ACUTE CORONARY SYNDROME
     Route: 058
     Dates: start: 20060307, end: 20060313
  7. ASPIRIN [Concomitant]
     Indication: THROMBOSIS PROPHYLAXIS
     Dates: start: 20060308
  8. LEVOTHYROXINE SODIUM [Concomitant]
     Indication: HYPOTHYROIDISM
     Route: 048
  9. XANAX [Concomitant]
     Indication: ANXIETY
     Route: 048
     Dates: start: 20060308, end: 20060309
  10. LASILIX [Concomitant]
     Indication: CARDIAC FAILURE
     Dates: start: 20060308, end: 20060308
  11. LASILIX [Concomitant]
     Dates: start: 20060310, end: 20060310
  12. TIAPRIDAL [Concomitant]
     Indication: RESTLESSNESS
     Dates: start: 20060309, end: 20060310
  13. EQUANIL [Concomitant]
     Indication: RESTLESSNESS
     Route: 048
     Dates: start: 20060309, end: 20060309
  14. ATARAX [Concomitant]
     Indication: PROPHYLAXIS
     Route: 048
     Dates: start: 20060309, end: 20060309
  15. ANEXATE TAB [Concomitant]
     Indication: CONFUSIONAL STATE
     Route: 042
     Dates: start: 20060310, end: 20060310
  16. SOLUDACTONE [Concomitant]
     Indication: CARDIAC FAILURE
     Dates: start: 20060310, end: 20060310
  17. VASTAREL [Concomitant]
     Indication: CORONARY ARTERY DISEASE
     Route: 048
     Dates: start: 20060311
  18. FUROSEMIDE [Concomitant]
     Route: 048
     Dates: start: 20060312, end: 20060312

REACTIONS (3)
  - CONFUSIONAL STATE [None]
  - CYTOLYTIC HEPATITIS [None]
  - RESTLESSNESS [None]
